FAERS Safety Report 4840849-4 (Version None)
Quarter: 2005Q4

REPORT INFORMATION
  Report Type: 
  Country: None (occurrence: None)
  Receive Date: 20051130
  Receipt Date: 20050829
  Transmission Date: 20060501
  Serious: No
  Sender: FDA-Public Use
  Company Number: US-BRISTOL-MYERS SQUIBB COMPANY-13092846

PATIENT
  Sex: Female

DRUGS (1)
  1. AVALIDE [Suspect]
     Indication: HYPERTENSION
     Dosage: 1 TABLET DAILY; CURRENTLY ON THERAPY, BUT PLANNING ON DISCONTINUING IT.
     Route: 048
     Dates: start: 20040101

REACTIONS (1)
  - GOUT [None]
